FAERS Safety Report 12766679 (Version 1)
Quarter: 2016Q3

REPORT INFORMATION
  Report Type: Spontaneous
  Country: US (occurrence: US)
  Receive Date: 20160915
  Receipt Date: 20160915
  Transmission Date: 20161109
  Serious: No
  Sender: FDA-Public Use
  Company Number: None

PATIENT
  Age: 24 Year
  Sex: Male

DRUGS (1)
  1. METHYLPREDNISOLONE 1GM FRESENIUS KABI [Suspect]
     Active Substance: METHYLPREDNISOLONE
     Indication: MULTIPLE SCLEROSIS
     Dosage: 1GM Q 24 HOURS IVPB
     Dates: start: 20160627, end: 20160628

REACTIONS (1)
  - Palpitations [None]

NARRATIVE: CASE EVENT DATE: 20160627
